FAERS Safety Report 13296419 (Version 1)
Quarter: 2017Q1

REPORT INFORMATION
  Report Type: Spontaneous
  Country: DE (occurrence: DE)
  Receive Date: 20170305
  Receipt Date: 20170305
  Transmission Date: 20170428
  Serious: No
  Sender: FDA-Public Use
  Company Number: CHPA2016DE003466

PATIENT
  Sex: Male

DRUGS (1)
  1. LAMISIL [Suspect]
     Active Substance: TERBINAFINE HYDROCHLORIDE
     Indication: DERMATOPHYTOSIS
     Dosage: UNK, QD (BUT NOT EVERY DAY FOR 2 WEEKS)
     Route: 061
     Dates: start: 20160302, end: 20160315

REACTIONS (4)
  - Product quality issue [Unknown]
  - Condition aggravated [Unknown]
  - Dermatophytosis [Unknown]
  - Drug ineffective [Unknown]

NARRATIVE: CASE EVENT DATE: 20160310
